FAERS Safety Report 9993338 (Version 4)
Quarter: 2015Q4

REPORT INFORMATION
  Report Type: Spontaneous
  Country: US (occurrence: US)
  Receive Date: 20140310
  Receipt Date: 20151019
  Transmission Date: 20160305
  Serious: Yes (Hospitalization, Other)
  Sender: FDA-Public Use
  Company Number: US-009507513-1403USA000700

PATIENT
  Sex: Female
  Weight: 76.64 kg

DRUGS (3)
  1. ZINC (UNSPECIFIED) [Concomitant]
     Indication: PRODUCT USED FOR UNKNOWN INDICATION
     Dosage: 50 MG, BID
     Route: 048
     Dates: start: 1999
  2. FOSAMAX [Suspect]
     Active Substance: ALENDRONATE SODIUM
     Indication: OSTEOPOROSIS
     Dosage: 10 MG, UNK
     Route: 048
     Dates: start: 20000821
  3. FOSAMAX [Suspect]
     Active Substance: ALENDRONATE SODIUM
     Dosage: 70 MG, QW
     Route: 048
     Dates: start: 200108, end: 200501

REACTIONS (23)
  - Osteoporosis [Unknown]
  - Bursitis [Unknown]
  - Carpal tunnel syndrome [Unknown]
  - Arthralgia [Unknown]
  - Osteonecrosis of jaw [Unknown]
  - Intramedullary rod insertion [Not Recovered/Not Resolved]
  - Internal fixation of fracture [Unknown]
  - Impaired healing [Recovered/Resolved]
  - Osteoarthritis [Unknown]
  - Arthralgia [Unknown]
  - Hyperlipidaemia [Unknown]
  - Arthropathy [Unknown]
  - Insomnia [Unknown]
  - Oral surgery [Unknown]
  - Osteoarthritis [Unknown]
  - Knee arthroplasty [Unknown]
  - Back pain [Unknown]
  - Paraesthesia [Unknown]
  - Surgery [Unknown]
  - Femur fracture [Recovered/Resolved]
  - Vitamin D deficiency [Unknown]
  - Back pain [Unknown]
  - Tension headache [Unknown]

NARRATIVE: CASE EVENT DATE: 200112
